FAERS Safety Report 4540828-0 (Version None)
Quarter: 2004Q4

REPORT INFORMATION
  Report Type: 
  Country: None (occurrence: None)
  Receive Date: 20041229
  Receipt Date: 20031027
  Transmission Date: 20050328
  Serious: Yes (Life-Threatening)
  Sender: FDA-Public Use
  Company Number: GB-MERCK-0310GBR00310

PATIENT
  Age: 63 Year
  Sex: Female

DRUGS (2)
  1. VIOXX [Suspect]
     Indication: OSTEOARTHRITIS
     Route: 048
     Dates: start: 20021125, end: 20030829
  2. CIMETIDINE [Concomitant]
     Indication: DYSPEPSIA
     Route: 048
     Dates: start: 19980319

REACTIONS (2)
  - ABDOMINAL PAIN UPPER [None]
  - HAEMATEMESIS [None]
